FAERS Safety Report 24565377 (Version 2)
Quarter: 2024Q4

REPORT INFORMATION
  Report Type: Spontaneous
  Country: ES (occurrence: ES)
  Receive Date: 20241030
  Receipt Date: 20241108
  Transmission Date: 20250115
  Serious: Yes (Other)
  Sender: RANBAXY
  Company Number: ES-SUN PHARMACEUTICAL INDUSTRIES LTD-2024R1-475823

PATIENT
  Age: 44 Year
  Sex: Male

DRUGS (2)
  1. TOBRAMYCIN [Suspect]
     Active Substance: TOBRAMYCIN\TOBRAMYCIN SULFATE
     Indication: Monkeypox
     Dosage: Q8H
     Route: 061
  2. FLUOROMETHOLONE [Concomitant]
     Active Substance: FLUOROMETHOLONE
     Indication: Monkeypox
     Dosage: UNK
     Route: 061

REACTIONS (3)
  - Condition aggravated [Unknown]
  - Anterior chamber inflammation [Recovering/Resolving]
  - Keratitis [Recovering/Resolving]
